FAERS Safety Report 4366259-4 (Version None)
Quarter: 2004Q2

REPORT INFORMATION
  Report Type: 
  Country: None (occurrence: None)
  Receive Date: 20040524
  Receipt Date: 20040130
  Transmission Date: 20050107
  Serious: No
  Sender: FDA-Public Use
  Company Number: SU-2004-002099

PATIENT
  Age: 79 Year
  Sex: Female
  Weight: 53.978 kg

DRUGS (4)
  1. BENICAR [Suspect]
     Indication: HYPERTENSION
     Dosage: 20 MG QD PO
     Route: 048
     Dates: start: 20040121
  2. FOSAMAX [Concomitant]
  3. CALCIUM SUPPLEMENTS [Concomitant]
  4. MULTI-VITAMINS [Concomitant]

REACTIONS (1)
  - VISION BLURRED [None]
